FAERS Safety Report 17751075 (Version 1)
Quarter: 2020Q2

REPORT INFORMATION
  Report Type: Spontaneous
  Country: CN (occurrence: CN)
  Receive Date: 20200506
  Receipt Date: 20200506
  Transmission Date: 20200714
  Serious: Yes (Hospitalization, Other)
  Sender: FDA-Public Use
  Company Number: CN-ASTRAZENECA-2020SE58826

PATIENT
  Age: 17421 Day
  Sex: Male

DRUGS (3)
  1. ASPIRIN. [Concomitant]
     Active Substance: ASPIRIN
     Indication: STENT PLACEMENT
     Dosage: 1 TABLET BEFORE MEALS, ORAL QD
     Route: 048
  2. BRILINTA [Suspect]
     Active Substance: TICAGRELOR
     Indication: CORONARY ARTERY DISEASE
     Route: 048
     Dates: start: 20200130, end: 20200414
  3. ASPIRIN. [Concomitant]
     Active Substance: ASPIRIN
     Indication: ANGINA PECTORIS
     Dosage: 1 TABLET BEFORE MEALS, ORAL QD
     Route: 048

REACTIONS (11)
  - Nausea [Unknown]
  - Shock [Unknown]
  - Anaemia [Unknown]
  - Lower gastrointestinal haemorrhage [Recovering/Resolving]
  - Dyspnoea [Not Recovered/Not Resolved]
  - Haematochezia [Recovering/Resolving]
  - Sinus tachycardia [Unknown]
  - Faeces discoloured [Recovered/Resolved]
  - Abdominal pain upper [Not Recovered/Not Resolved]
  - Abdominal discomfort [Unknown]
  - Fatigue [Recovering/Resolving]

NARRATIVE: CASE EVENT DATE: 20200409
